FAERS Safety Report 15691902 (Version 4)
Quarter: 2020Q1

REPORT INFORMATION
  Report Type: Spontaneous
  Country: US (occurrence: US)
  Receive Date: 20181205
  Receipt Date: 20200331
  Transmission Date: 20200409
  Serious: No
  Sender: FDA-Public Use
  Company Number: US-PFIZER INC-2018499833

PATIENT
  Age: 47 Year
  Sex: Female
  Weight: 80.74 kg

DRUGS (3)
  1. HYDROCODONE/ACETAMINOPHEN [Concomitant]
     Active Substance: ACETAMINOPHEN\HYDROCODONE
     Indication: SPINAL OSTEOARTHRITIS
  2. LYRICA [Suspect]
     Active Substance: PREGABALIN
     Indication: FIBROMYALGIA
     Dosage: 150 MG, 2X/DAY
     Route: 048
  3. HYDROCODONE/ACETAMINOPHEN [Concomitant]
     Active Substance: ACETAMINOPHEN\HYDROCODONE
     Indication: PAIN
     Dosage: UNK UNK [HYDROCODONE BITARTRATE 7.5 MG]\[PARACETAMOL325MG]EVERY 6 HOURS AS NEEDED MAXIMUM 6 PER DAY
     Dates: start: 2017

REACTIONS (5)
  - Pain [Not Recovered/Not Resolved]
  - Drug hypersensitivity [Unknown]
  - Feeling abnormal [Unknown]
  - Fatigue [Unknown]
  - Decreased appetite [Unknown]

NARRATIVE: CASE EVENT DATE: 202003
